FAERS Safety Report 5550637-1 (Version None)
Quarter: 2007Q4

REPORT INFORMATION
  Report Type: 
  Country: None (occurrence: None)
  Receive Date: 20071212
  Receipt Date: 20071203
  Transmission Date: 20080405
  Serious: Yes (Disabling)
  Sender: FDA-Public Use
  Company Number: IN-GENENTECH-252196

PATIENT
  Age: 71 Year
  Sex: Female

DRUGS (1)
  1. LUCENTIS [Suspect]
     Indication: MACULAR DEGENERATION
     Dosage: 0.05 ML, UNK
     Route: 031

REACTIONS (4)
  - DEPOSIT EYE [None]
  - EYE HAEMORRHAGE [None]
  - EYE PAIN [None]
  - VISUAL ACUITY REDUCED [None]
